FAERS Safety Report 11141273 (Version 1)
Quarter: 2015Q2

REPORT INFORMATION
  Report Type: Spontaneous
  Country: US (occurrence: US)
  Receive Date: 20150525
  Receipt Date: 20150525
  Transmission Date: 20150821
  Serious: No
  Sender: FDA-Public Use
  Company Number: US-JNJFOC-20150203578

PATIENT

DRUGS (1)
  1. RISPERIDONE. [Suspect]
     Active Substance: RISPERIDONE
     Indication: SCHIZOPHRENIA
     Route: 065

REACTIONS (11)
  - Fatigue [Unknown]
  - Nausea [Unknown]
  - Dry mouth [Unknown]
  - Nasal congestion [Unknown]
  - Sedation [Unknown]
  - Insomnia [Unknown]
  - Palpitations [Unknown]
  - Dizziness [Unknown]
  - Somnolence [Unknown]
  - Weight increased [Unknown]
  - Dyskinesia [Unknown]
